FAERS Safety Report 7557269-4 (Version None)
Quarter: 2011Q2

REPORT INFORMATION
  Report Type: 
  Country: None (occurrence: None)
  Receive Date: 20110616
  Receipt Date: 20110616
  Transmission Date: 20111010
  Serious: Yes (Other)
  Sender: FDA-Public Use
  Company Number: None

PATIENT
  Age: 56 Year
  Sex: Male
  Weight: 76.2043 kg

DRUGS (9)
  1. DEPAKOTE ER [Concomitant]
  2. ASPIRIN [Concomitant]
  3. NPH INSULIN [Concomitant]
  4. SUSTIVA [Concomitant]
  5. M.V.I. [Concomitant]
  6. CITALOPRAM HYDROBROMIDE [Concomitant]
  7. VIREAD [Suspect]
     Indication: HIV INFECTION
     Dosage: 300MG PO QDAILY  MANY YEARS
     Route: 048
  8. AMLODIPINE [Concomitant]
  9. COMBIVIR [Concomitant]

REACTIONS (1)
  - RENAL FAILURE CHRONIC [None]
